FAERS Safety Report 24686629 (Version 4)
Quarter: 2025Q1

REPORT INFORMATION
  Report Type: Report from Study
  Country: CN (occurrence: CN)
  Receive Date: 20241202
  Receipt Date: 20250114
  Transmission Date: 20250409
  Serious: Yes (Death, Other)
  Sender: PFIZER
  Company Number: CN-TAKEDA-2023TUS108633

PATIENT
  Age: 42 Year
  Sex: Female
  Weight: 40 kg

DRUGS (24)
  1. BRENTUXIMAB VEDOTIN [Suspect]
     Active Substance: BRENTUXIMAB VEDOTIN
     Indication: Angiocentric lymphoma
     Dosage: 100 MILLIGRAM, Q3WEEKS
     Route: 041
     Dates: start: 20231027
  2. TIGECYCLINE [Suspect]
     Active Substance: TIGECYCLINE
     Route: 065
  3. PHOSPHOLIPID [Concomitant]
     Active Substance: PHOSPHOLIPID
     Indication: Angiocentric lymphoma
     Dosage: UNK UNK, BID
     Route: 042
     Dates: start: 20231030, end: 20231113
  4. DOCUSATE SODIUM [Concomitant]
     Active Substance: DOCUSATE SODIUM
     Indication: Angiocentric lymphoma
     Dosage: 300 MILLIGRAM, QD
     Route: 048
     Dates: start: 20231031, end: 20231102
  5. GRANULOCYTE COLONY-STIMULATING FACTOR NOS [Concomitant]
     Active Substance: GRANULOCYTE COLONY-STIMULATING FACTOR NOS
     Indication: Angiocentric lymphoma
     Dosage: 300 MICROGRAM, QD
     Route: 058
     Dates: start: 20231104, end: 20231122
  6. IMIPENEM [Concomitant]
     Active Substance: IMIPENEM
     Indication: Angiocentric lymphoma
     Dosage: 1 GRAM, Q6HR
     Route: 042
     Dates: start: 20231104, end: 20231108
  7. OMEPRAZOLE SODIUM [Concomitant]
     Active Substance: OMEPRAZOLE SODIUM
     Indication: Angiocentric lymphoma
     Dosage: 40 MILLIGRAM, QD
     Route: 042
     Dates: start: 20231104, end: 20231113
  8. ALUMINUM MAGNESIUM HYDRATE [Concomitant]
     Indication: Angiocentric lymphoma
     Dosage: 10 MILLILITER, TID (SUSPENSION)
     Route: 042
     Dates: start: 20231104, end: 20231112
  9. POTASSIUM CHLORIDE [Concomitant]
     Active Substance: POTASSIUM CHLORIDE
     Indication: Angiocentric lymphoma
     Dosage: 0.5 GRAM, BID
     Route: 048
     Dates: start: 20231105, end: 20231113
  10. GLUTATHIONE [Concomitant]
     Active Substance: GLUTATHIONE
     Indication: Angiocentric lymphoma
     Route: 042
     Dates: start: 20231105, end: 20231113
  11. OTILONIUM BROMIDE [Concomitant]
     Active Substance: OTILONIUM BROMIDE
     Indication: Angiocentric lymphoma
     Dosage: 40 MILLIGRAM, TID
     Route: 048
     Dates: start: 20231105, end: 20231113
  12. MONTMORILLONITE [Concomitant]
     Active Substance: MONTMORILLONITE
     Indication: Angiocentric lymphoma
     Dosage: 3 GRAM, TID (POWDER (EXCEPT [DPO]))
     Route: 048
     Dates: start: 20231105, end: 20231108
  13. MOXIFLOXACIN HYDROCHLORIDE [Concomitant]
     Active Substance: MOXIFLOXACIN HYDROCHLORIDE
     Indication: Angiocentric lymphoma
     Dosage: 250 MILLILITER, QD
     Route: 042
     Dates: start: 20231108, end: 20231113
  14. CALCIUM CARBONATE [Concomitant]
     Active Substance: CALCIUM CARBONATE
     Indication: Angiocentric lymphoma
     Dosage: UNK UNK, BID
     Route: 048
     Dates: start: 20231117, end: 20231122
  15. CALCITRIOL [Concomitant]
     Active Substance: CALCITRIOL
     Indication: Angiocentric lymphoma
     Dosage: 0.5 MICROGRAM, QD
     Route: 048
     Dates: start: 20231117, end: 20231122
  16. RABEPRAZOLE SODIUM [Concomitant]
     Active Substance: RABEPRAZOLE SODIUM
     Indication: Angiocentric lymphoma
     Dosage: 20 MILLIGRAM, QD
     Route: 042
     Dates: start: 20231117, end: 20231122
  17. GLYCYRRHIZIN [Concomitant]
     Active Substance: GLYCYRRHIZIN
     Indication: Angiocentric lymphoma
     Dosage: 20 MILLILITER, QD
     Route: 042
     Dates: start: 20231117, end: 20231122
  18. PREDNISOLONE ACETATE [Concomitant]
     Active Substance: PREDNISOLONE ACETATE
     Indication: Angiocentric lymphoma
     Dosage: 100 MILLIGRAM, QD
     Route: 048
     Dates: start: 20231117, end: 20231122
  19. INSULIN PORK\INSULIN PURIFIED PORK [Concomitant]
     Active Substance: INSULIN PORK\INSULIN PURIFIED PORK
     Indication: Angiocentric lymphoma
     Dosage: UNK UNK, QD
     Route: 042
     Dates: start: 20231117, end: 20231121
  20. PALONOSETRON HYDROCHLORIDE [Concomitant]
     Active Substance: PALONOSETRON HYDROCHLORIDE
     Indication: Angiocentric lymphoma
     Dosage: 0.25 MILLIGRAM, QD
     Route: 042
     Dates: start: 20231117, end: 20231121
  21. CYCLOPHOSPHAMIDE [Concomitant]
     Active Substance: CYCLOPHOSPHAMIDE
     Indication: Angiocentric lymphoma
     Route: 042
     Dates: start: 20231117, end: 20231121
  22. MESNA [Concomitant]
     Active Substance: MESNA
     Indication: Angiocentric lymphoma
     Route: 042
     Dates: start: 20231117, end: 20231121
  23. ETOPOSIDE [Concomitant]
     Active Substance: ETOPOSIDE
     Indication: Angiocentric lymphoma
     Dosage: 0.1 GRAM, QD
     Route: 042
     Dates: start: 20231117, end: 20231120
  24. SUBTILISIN [Concomitant]
     Active Substance: SUBTILISIN BPN^

REACTIONS (1)
  - Respiratory failure [Fatal]

NARRATIVE: CASE EVENT DATE: 20240526
